FAERS Safety Report 5093896-4 (Version None)
Quarter: 2006Q3

REPORT INFORMATION
  Report Type: 
  Country: None (occurrence: None)
  Receive Date: 20060728
  Receipt Date: 20060626
  Transmission Date: 20061208
  Serious: No
  Sender: FDA-Public Use
  Company Number: 254424

PATIENT
  Age: 45 Year
  Weight: 51.2 kg

DRUGS (2)
  1. LEVEMIR [Suspect]
     Indication: DIABETES MELLITUS INSULIN-DEPENDENT
     Dosage: SLIDING SCALE, QD,SUBCUTANEOS
     Route: 058
     Dates: start: 20060619
  2. NOVOLOG [Suspect]
     Indication: DIABETES MELLITUS INSULIN-DEPENDENT
     Dosage: 12 IU, QD, SUBCUTANEOUS
     Route: 058
     Dates: start: 20020101

REACTIONS (1)
  - BLOOD GLUCOSE FLUCTUATION [None]
